FAERS Safety Report 19222007 (Version 1)
Quarter: 2021Q2

REPORT INFORMATION
  Report Type: Spontaneous
  Country: US (occurrence: US)
  Receive Date: 20210505
  Receipt Date: 20210505
  Transmission Date: 20210717
  Serious: Yes (Hospitalization)
  Sender: FDA-Public Use
  Company Number: None

PATIENT
  Age: 61 Year
  Sex: Male
  Weight: 79.2 kg

DRUGS (2)
  1. MEN^S ONE A DAY MULTI VITAMIN [Concomitant]
  2. DOXYCYCLINE HYCLATE FOR VIBRAMMYCIN [Suspect]
     Active Substance: DOXYCYCLINE HYCLATE
     Indication: EYE INFECTION
     Dosage: ?          QUANTITY:21 CAPSULE(S);?
     Route: 048
     Dates: start: 20210428, end: 20210504

REACTIONS (1)
  - Chest pain [None]

NARRATIVE: CASE EVENT DATE: 20210504
